FAERS Safety Report 7767788-3 (Version None)
Quarter: 2011Q3

REPORT INFORMATION
  Report Type: 
  Country: None (occurrence: None)
  Receive Date: 20110922
  Receipt Date: 20100902
  Transmission Date: 20111222
  Serious: No
  Sender: FDA-Public Use
  Company Number: US-ASTRAZENECA-2010SE41476

PATIENT
  Sex: Female
  Weight: 76.2 kg

DRUGS (1)
  1. SEROQUEL XR [Suspect]
     Indication: MOOD SWINGS
     Route: 048
     Dates: start: 20100831, end: 20100831

REACTIONS (2)
  - HYPERSOMNIA [None]
  - CONFUSIONAL STATE [None]
